FAERS Safety Report 19030880 (Version 3)
Quarter: 2021Q3

REPORT INFORMATION
  Report Type: Spontaneous
  Country: GB (occurrence: GB)
  Receive Date: 20210319
  Receipt Date: 20210712
  Transmission Date: 20211014
  Serious: Yes (Hospitalization)
  Sender: FDA-Public Use
  Company Number: GB-DRREDDYS-GER/UKI/21/0133194

PATIENT
  Age: 60 Year
  Sex: Female

DRUGS (5)
  1. PARACETAMOL [Suspect]
     Active Substance: ACETAMINOPHEN
     Indication: PRODUCT USED FOR UNKNOWN INDICATION
     Dates: start: 2020
  2. ENGERIX?B [Suspect]
     Active Substance: HEPATITIS B VIRUS SUBTYPE ADW2 HBSAG SURFACE PROTEIN ANTIGEN
     Indication: PROPHYLAXIS
     Dates: start: 20200729
  3. PARACETAMOL [Suspect]
     Active Substance: ACETAMINOPHEN
     Indication: INFLUENZA LIKE ILLNESS
  4. IBUPROFEN. [Suspect]
     Active Substance: IBUPROFEN
     Indication: INFLUENZA LIKE ILLNESS
     Dates: start: 2020
  5. IBUPROFEN. [Suspect]
     Active Substance: IBUPROFEN
     Indication: INFLUENZA LIKE ILLNESS

REACTIONS (8)
  - Feeling hot [Unknown]
  - Sleep disorder [Unknown]
  - Influenza like illness [Unknown]
  - Nausea [Unknown]
  - Drug ineffective [Not Recovered/Not Resolved]
  - Hyperhidrosis [Unknown]
  - Vertigo [Unknown]
  - Pain in extremity [Unknown]

NARRATIVE: CASE EVENT DATE: 202007
